FAERS Safety Report 4291165-3 (Version None)
Quarter: 2004Q1

REPORT INFORMATION
  Report Type: 
  Country: None (occurrence: None)
  Receive Date: 20040211
  Receipt Date: 20040206
  Transmission Date: 20041129
  Serious: Yes (Hospitalization, Other)
  Sender: FDA-Public Use
  Company Number: 200410290DE

PATIENT
  Age: 58 Year
  Sex: Male
  Weight: 91 kg

DRUGS (6)
  1. INSULIN GLARGINE [Suspect]
     Route: 058
     Dates: start: 20031218, end: 20040204
  2. FELODIPINE [Concomitant]
     Route: 048
  3. DELIX 5 [Concomitant]
     Route: 048
  4. ZOCOR [Concomitant]
     Route: 048
  5. ASPIRIN [Concomitant]
     Route: 048
  6. NPH ILETIN II [Concomitant]
     Dates: start: 20031127, end: 20031217

REACTIONS (4)
  - ARRHYTHMIA [None]
  - CORONARY ARTERY DISEASE [None]
  - DIZZINESS [None]
  - HEART RATE IRREGULAR [None]
